FAERS Safety Report 8478618-9 (Version None)
Quarter: 2012Q2

REPORT INFORMATION
  Report Type: 
  Country: None (occurrence: None)
  Receive Date: 20120629
  Receipt Date: 20120627
  Transmission Date: 20120825
  Serious: Yes (Death, Hospitalization)
  Sender: FDA-Public Use
  Company Number: BE-PFIZER INC-2012148235

PATIENT
  Age: 79 Year
  Sex: Male

DRUGS (8)
  1. PRAVASINE [Concomitant]
     Indication: HYPERLIPIDAEMIA
     Dosage: 20 MG, 1X/DAY
     Route: 048
  2. OMEPRAZOLE [Concomitant]
     Indication: GASTRIC ULCER
     Dosage: 40 MG, 1X/DAY
     Route: 048
  3. FERROUS SULFATE TAB [Concomitant]
     Indication: ANAEMIA
     Dosage: 500 MG, 1X/DAY
     Route: 048
  4. SOMATROPIN [Suspect]
     Indication: HYPOPITUITARISM
     Dosage: 0.5 MG, 1X/DAY
     Route: 058
     Dates: start: 19980924
  5. CARDIOASPIRINE [Concomitant]
     Indication: PROPHYLAXIS
     Route: 048
  6. LISINOPRIL [Concomitant]
     Indication: HYPERTENSION
     Dosage: 20 MG, 1X/DAY
     Route: 048
  7. ELTHYRONE [Concomitant]
     Indication: HYPOTHYROIDISM
     Dosage: 200 UG, 1X/DAY
     Route: 048
  8. ALLOPURINOL [Concomitant]
     Indication: GOUT
     Dosage: 300 MG, 1X/DAY
     Route: 048

REACTIONS (1)
  - STAPHYLOCOCCAL SEPSIS [None]
